FAERS Safety Report 21634074 (Version 2)
Quarter: 2022Q4

REPORT INFORMATION
  Report Type: Report from Study
  Country: IT (occurrence: IT)
  Receive Date: 20221123
  Receipt Date: 20221207
  Transmission Date: 20230113
  Serious: No
  Sender: FDA-Public Use
  Company Number: IT-PFIZER INC-PV202200108020

PATIENT
  Age: 28 Year
  Sex: Female

DRUGS (1)
  1. CYTOTEC [Suspect]
     Active Substance: MISOPROSTOL
     Indication: Abortion induced
     Dosage: 200 UG, 3 PILLS, FREQUENCY: 2
     Route: 048
     Dates: start: 20181113, end: 20181113

REACTIONS (2)
  - Pain [Recovered/Resolved]
  - Haemorrhage [Recovered/Resolved]

NARRATIVE: CASE EVENT DATE: 20181116
